FAERS Safety Report 23320965 (Version 3)
Quarter: 2024Q1

REPORT INFORMATION
  Report Type: Report from Study
  Country: BR (occurrence: BR)
  Receive Date: 20231220
  Receipt Date: 20240112
  Transmission Date: 20240410
  Serious: No
  Sender: FDA-Public Use
  Company Number: BR-002147023-NVSC2023BR186934

PATIENT
  Age: 45 Year
  Sex: Female
  Weight: 46 kg

DRUGS (5)
  1. KISQALI [Suspect]
     Active Substance: RIBOCICLIB
     Indication: Breast cancer
     Dosage: UNK
     Route: 065
  2. KISQALI [Suspect]
     Active Substance: RIBOCICLIB
     Indication: Metastases to bone
     Dosage: UNK
     Route: 065
  3. KISQALI [Suspect]
     Active Substance: RIBOCICLIB
     Dosage: 3 TABLETS AT NIGHT, 21 DAYS OF  MEDICATION USE WITH A 7-DAY BREAK
     Route: 048
     Dates: start: 202308
  4. ZOMETA [Suspect]
     Active Substance: ZOLEDRONIC ACID
     Indication: Breast cancer
     Dosage: EVERY 3 MONTHS
     Route: 042
     Dates: start: 202308
  5. ZOMETA [Suspect]
     Active Substance: ZOLEDRONIC ACID
     Indication: Metastases to bone

REACTIONS (12)
  - Weight decreased [Recovered/Resolved]
  - Product taste abnormal [Unknown]
  - Anxiety [Recovering/Resolving]
  - Eye movement disorder [Recovered/Resolved]
  - Vision blurred [Recovered/Resolved]
  - Sluggishness [Recovered/Resolved]
  - Boredom [Unknown]
  - Abdominal pain [Recovering/Resolving]
  - Headache [Recovered/Resolved]
  - Decreased appetite [Unknown]
  - Pain in extremity [Recovered/Resolved]
  - Product use issue [Unknown]

NARRATIVE: CASE EVENT DATE: 20230801
